FAERS Safety Report 7904844-0 (Version None)
Quarter: 2011Q4

REPORT INFORMATION
  Report Type: 
  Country: None (occurrence: None)
  Receive Date: 20111109
  Receipt Date: 20111028
  Transmission Date: 20120403
  Serious: Yes (Hospitalization)
  Sender: FDA-Public Use
  Company Number: PHHY2011JP92862

PATIENT
  Age: 62 Year
  Sex: Female

DRUGS (1)
  1. GLEEVEC [Suspect]
     Indication: GASTROINTESTINAL STROMAL TUMOUR
     Route: 048

REACTIONS (6)
  - LOSS OF CONSCIOUSNESS [None]
  - VOMITING [None]
  - CONVULSION [None]
  - DECREASED APPETITE [None]
  - GENERALISED OEDEMA [None]
  - HYPOGLYCAEMIA [None]
